FAERS Safety Report 7387882-9 (Version None)
Quarter: 2011Q1

REPORT INFORMATION
  Report Type: 
  Country: None (occurrence: None)
  Receive Date: 20110331
  Receipt Date: 20110321
  Transmission Date: 20110831
  Serious: Yes (Other)
  Sender: FDA-Public Use
  Company Number: US-BAXTER-2010BH005936

PATIENT
  Age: 73 Year
  Sex: Female

DRUGS (9)
  1. PHENERGAN HCL [Suspect]
     Indication: NAUSEA
     Route: 042
     Dates: start: 20080220, end: 20080220
  2. PLAVIX [Concomitant]
     Indication: PRODUCT USED FOR UNKNOWN INDICATION
     Route: 048
  3. BUMEX [Concomitant]
     Indication: PRODUCT USED FOR UNKNOWN INDICATION
     Route: 048
  4. METOPROLOL [Concomitant]
     Indication: PRODUCT USED FOR UNKNOWN INDICATION
     Route: 048
  5. ASPIRIN [Concomitant]
     Indication: PRODUCT USED FOR UNKNOWN INDICATION
     Route: 048
  6. SIMVASTATIN [Concomitant]
     Indication: PRODUCT USED FOR UNKNOWN INDICATION
     Route: 048
  7. PRED FORTE [Concomitant]
     Indication: PRODUCT USED FOR UNKNOWN INDICATION
     Route: 031
  8. INDOMETHACIN [Concomitant]
     Indication: PRODUCT USED FOR UNKNOWN INDICATION
     Route: 048
  9. LUMIGAN [Concomitant]
     Indication: PRODUCT USED FOR UNKNOWN INDICATION
     Route: 031

REACTIONS (3)
  - GANGRENE [None]
  - EXTRAVASATION [None]
  - THROMBOSIS [None]
